FAERS Safety Report 19365733 (Version 2)
Quarter: 2021Q2

REPORT INFORMATION
  Report Type: Report from Study
  Country: None (occurrence: US)
  Receive Date: 20210602
  Receipt Date: 20210616
  Transmission Date: 20210717
  Serious: Yes (Hospitalization, Other)
  Sender: FDA-Public Use
  Company Number: US-ABBVIE-21K-163-3926388-00

PATIENT
  Age: 33 Year
  Sex: Female

DRUGS (7)
  1. CHAMPIX [Concomitant]
     Active Substance: VARENICLINE TARTRATE
     Indication: SMOKING CESSATION THERAPY
  2. METOPROLOL. [Concomitant]
     Active Substance: METOPROLOL
     Indication: HYPERTENSION
  3. DICYCLOMINE [Concomitant]
     Active Substance: DICYCLOMINE HYDROCHLORIDE
     Indication: ABDOMINAL PAIN UPPER
  4. COVID?19 VACCINE [Concomitant]
     Indication: COVID-19 IMMUNISATION
     Dosage: ?MANUFACTURER PFIZER
     Route: 030
     Dates: start: 20210325, end: 20210325
  5. EFFEXOR [Concomitant]
     Active Substance: VENLAFAXINE HYDROCHLORIDE
     Indication: ANTIDEPRESSANT THERAPY
  6. COVID?19 VACCINE [Concomitant]
     Dosage: MANUFACTURER PFIZER
     Route: 030
     Dates: start: 20210412, end: 20210412
  7. HUMIRA [Suspect]
     Active Substance: ADALIMUMAB
     Indication: CROHN^S DISEASE
     Route: 058
     Dates: start: 201903, end: 20210427

REACTIONS (4)
  - Viral infection [Recovered/Resolved]
  - Small intestinal obstruction [Recovering/Resolving]
  - Fatigue [Recovering/Resolving]
  - Small intestinal resection [Recovered/Resolved]

NARRATIVE: CASE EVENT DATE: 202101
